FAERS Safety Report 5365157-7 (Version None)
Quarter: 2007Q2

REPORT INFORMATION
  Report Type: 
  Country: None (occurrence: None)
  Receive Date: 20070621
  Receipt Date: 20070615
  Transmission Date: 20071010
  Serious: Yes (Death)
  Sender: FDA-Public Use
  Company Number: FR-BAYER-200710369BFR

PATIENT
  Age: 59 Year
  Sex: Female

DRUGS (5)
  1. IZILOX [Suspect]
     Indication: BRONCHITIS
     Route: 048
     Dates: start: 20070101
  2. CARBOCISTEINE [Concomitant]
     Indication: BRONCHITIS
     Dates: start: 20070101
  3. SPIRONOLACTONE [Concomitant]
     Indication: UNEVALUABLE EVENT
  4. BETA ADRENERGIC BLOCKING AGENT (NOS) [Concomitant]
     Indication: UNEVALUABLE EVENT
  5. ANTIDIABETIC DRUG (NOS) [Concomitant]
     Indication: DIABETES MELLITUS

REACTIONS (4)
  - ANAPHYLACTIC SHOCK [None]
  - FALL [None]
  - LOSS OF CONSCIOUSNESS [None]
  - URTICARIA [None]
